FAERS Safety Report 9869910 (Version 2)
Quarter: 2014Q1

REPORT INFORMATION
  Report Type: Spontaneous
  Country: DE (occurrence: DE)
  Receive Date: 20140205
  Receipt Date: 20140221
  Transmission Date: 20141002
  Serious: Yes (Hospitalization, Other)
  Sender: FDA-Public Use
  Company Number: DE-BAYER-2014-015856

PATIENT
  Age: 48 Year
  Sex: Female

DRUGS (2)
  1. MIRENA [Suspect]
     Indication: MENORRHAGIA
     Dosage: 20 MCG/24HR, CONT
     Route: 015
     Dates: start: 20120820
  2. MIRENA [Suspect]
     Indication: MENORRHAGIA
     Dosage: 20 MCG/24HR, CONT
     Route: 015
     Dates: start: 2007, end: 201203

REACTIONS (11)
  - Amenorrhoea [Not Recovered/Not Resolved]
  - Embolic cerebral infarction [Recovered/Resolved]
  - Mitral valve incompetence [None]
  - Tricuspid valve incompetence [None]
  - Pulmonary valve incompetence [None]
  - VIIth nerve paralysis [Recovered/Resolved]
  - Ventricular extrasystoles [None]
  - Supraventricular extrasystoles [None]
  - Sleep apnoea syndrome [None]
  - Hypercholesterolaemia [None]
  - Left atrial dilatation [None]
